FAERS Safety Report 4888025-3 (Version None)
Quarter: 2006Q1

REPORT INFORMATION
  Report Type: 
  Country: None (occurrence: None)
  Receive Date: 20060123
  Receipt Date: 20051005
  Transmission Date: 20060701
  Serious: Yes (Death)
  Sender: FDA-Public Use
  Company Number: US-MERCK-0510USA03378

PATIENT
  Age: 46 Year
  Sex: Male

DRUGS (1)
  1. VIOXX [Suspect]
     Indication: BACK INJURY
     Route: 048

REACTIONS (4)
  - BRADYCARDIA [None]
  - CARDIO-RESPIRATORY ARREST [None]
  - DYSPNOEA [None]
  - MYOCARDIAL INFARCTION [None]
